FAERS Safety Report 6242697-X (Version None)
Quarter: 2009Q2

REPORT INFORMATION
  Report Type: 
  Country: None (occurrence: None)
  Receive Date: 20090624
  Receipt Date: 20090616
  Transmission Date: 20091009
  Serious: Yes (Death, Hospitalization)
  Sender: FDA-Public Use
  Company Number: PHHO2009CO04961

PATIENT
  Sex: Female
  Weight: 50 kg

DRUGS (5)
  1. RAD 666 RAD+TAB [Suspect]
     Indication: LIVER TRANSPLANT
     Dosage: UNKOWN
     Route: 048
     Dates: start: 20090318, end: 20090615
  2. TACROLIMUS COMP-TAC+ [Suspect]
     Indication: LIVER TRANSPLANT
     Dosage: UNK
     Route: 048
     Dates: start: 20090318, end: 20090413
  3. METHYLPREDNISOLONE [Concomitant]
     Indication: LIVER TRANSPLANT
  4. PREDNISOLONE [Concomitant]
     Indication: LIVER TRANSPLANT
  5. MYCOPHENOLATE MOFETIL [Concomitant]

REACTIONS (6)
  - DELIRIUM [None]
  - ENCEPHALOPATHY [None]
  - FALL [None]
  - KLEBSIELLA INFECTION [None]
  - PSYCHOTIC DISORDER [None]
  - URINARY TRACT INFECTION [None]
